FAERS Safety Report 10998418 (Version 1)
Quarter: 2015Q2

REPORT INFORMATION
  Report Type: Spontaneous
  Country: IT (occurrence: None)
  Receive Date: 20150406
  Receipt Date: 20150406
  Transmission Date: 20150821
  Serious: Yes (Other)
  Sender: FDA-Public Use
  Company Number: 2803931

PATIENT
  Age: 53 Year
  Sex: Male

DRUGS (2)
  1. MYCOSTATIN [Concomitant]
     Active Substance: NYSTATIN
  2. MEROPENEM. [Suspect]
     Active Substance: MEROPENEM
     Indication: INTESTINAL RESECTION
     Dates: start: 20150220, end: 20150304

REACTIONS (4)
  - Rash generalised [None]
  - Lip injury [None]
  - Stomatitis [None]
  - Rash erythematous [None]

NARRATIVE: CASE EVENT DATE: 20150227
